FAERS Safety Report 9638563 (Version 1)
Quarter: 2013Q4

REPORT INFORMATION
  Report Type: Spontaneous
  Country: BE (occurrence: BE)
  Receive Date: 20131022
  Receipt Date: 20131022
  Transmission Date: 20140711
  Serious: Yes (Other)
  Sender: FDA-Public Use
  Company Number: BE-BRISTOL-MYERS SQUIBB COMPANY-19588003

PATIENT
  Sex: Female
  Weight: 73 kg

DRUGS (2)
  1. ABILIFY [Suspect]
     Indication: SCHIZOPHRENIA
     Route: 048
     Dates: start: 20060101, end: 20130903
  2. RITMONORM [Concomitant]
     Route: 048

REACTIONS (1)
  - Arrhythmia [Unknown]
